FAERS Safety Report 9258988 (Version 4)
Quarter: 2013Q2

REPORT INFORMATION
  Report Type: Spontaneous
  Country: JP (occurrence: JP)
  Receive Date: 20130426
  Receipt Date: 20130612
  Transmission Date: 20140414
  Serious: Yes (Hospitalization)
  Sender: FDA-Public Use
  Company Number: JP-ASTRAZENECA-2013SE26625

PATIENT
  Age: 985 Month
  Sex: Female
  Weight: 59 kg

DRUGS (7)
  1. NEXIUM [Suspect]
     Indication: GASTROOESOPHAGEAL REFLUX DISEASE
     Route: 048
     Dates: start: 20130413, end: 20130416
  2. OMEPRAL [Suspect]
     Indication: GASTROOESOPHAGEAL REFLUX DISEASE
     Route: 048
     Dates: start: 20130408, end: 20130412
  3. LOXOPROFEN SODIUM HYDRATE [Suspect]
     Indication: LUMBAR VERTEBRAL FRACTURE
     Route: 048
     Dates: start: 20130413, end: 20130416
  4. MUCOSTA [Concomitant]
     Route: 048
     Dates: start: 20130413, end: 20130416
  5. RUEFRIEN [Concomitant]
     Indication: GASTROOESOPHAGEAL REFLUX DISEASE
     Route: 048
     Dates: start: 20130415, end: 20130416
  6. MICOMBI [Concomitant]
     Indication: CHOLELITHIASIS
     Route: 048
     Dates: end: 20130416
  7. FERROMIA [Concomitant]
     Indication: ANAEMIA
     Route: 048
     Dates: end: 20130416

REACTIONS (3)
  - Overdose [Unknown]
  - Renal failure acute [Recovered/Resolved]
  - Back pain [Unknown]
